FAERS Safety Report 5622595-2 (Version None)
Quarter: 2008Q1

REPORT INFORMATION
  Report Type: 
  Country: None (occurrence: None)
  Receive Date: 20080211
  Receipt Date: 20080211
  Transmission Date: 20080703
  Serious: No
  Sender: FDA-Public Use
  Company Number: None

PATIENT
  Age: 60 Year
  Sex: Female
  Weight: 68.0396 kg

DRUGS (1)
  1. VERSED [Suspect]
     Indication: CATARACT
     Dosage: VERSED 2MG X 1  IVP
     Route: 042
     Dates: start: 20080123

REACTIONS (1)
  - TREMOR [None]
